FAERS Safety Report 5257469-2 (Version None)
Quarter: 2007Q1

REPORT INFORMATION
  Report Type: 
  Country: None (occurrence: None)
  Receive Date: 20070307
  Receipt Date: 20060814
  Transmission Date: 20070707
  Serious: No
  Sender: FDA-Public Use
  Company Number: US-GLAXOSMITHKLINE-A0616515A

PATIENT
  Age: 67 Year
  Sex: Female

DRUGS (5)
  1. REQUIP [Suspect]
     Indication: RESTLESS LEGS SYNDROME
     Dosage: 5MG TWO TIMES PER WEEK
     Route: 048
     Dates: start: 20061101
  2. PREMARIN [Concomitant]
  3. LIPITOR [Concomitant]
  4. DETROL [Concomitant]
  5. NORVASC [Concomitant]

REACTIONS (1)
  - RESTLESSNESS [None]
